FAERS Safety Report 9855053 (Version 1)
Quarter: 2014Q1

REPORT INFORMATION
  Report Type: Report from Study
  Country: US (occurrence: US)
  Receive Date: 20140130
  Receipt Date: 20140130
  Transmission Date: 20141002
  Serious: Yes (Other)
  Sender: FDA-Public Use
  Company Number: US-US-EMD SERONO, INC.-7264760

PATIENT
  Age: 69 Year
  Sex: Female

DRUGS (1)
  1. REBIF [Suspect]
     Indication: MULTIPLE SCLEROSIS
     Route: 058
     Dates: start: 20070727

REACTIONS (6)
  - Arthropathy [Unknown]
  - Influenza [Not Recovered/Not Resolved]
  - Nasopharyngitis [Not Recovered/Not Resolved]
  - Gait disturbance [Unknown]
  - Musculoskeletal stiffness [Unknown]
  - Injection site extravasation [Unknown]
